FAERS Safety Report 24293633 (Version 1)
Quarter: 2024Q3

REPORT INFORMATION
  Report Type: Spontaneous
  Country: US (occurrence: None)
  Receive Date: 20240906
  Receipt Date: 20240906
  Transmission Date: 20241017
  Serious: No
  Sender: DOMPE FARMACEUTICI
  Company Number: US-FARMAPROD-202308-202402-0498

PATIENT
  Sex: Female
  Weight: 53.52 kg

DRUGS (12)
  1. OXERVATE [Suspect]
     Active Substance: CENEGERMIN-BKBJ
     Indication: Neurotrophic keratopathy
     Route: 047
     Dates: start: 20240205
  2. POTASSIUM CHLORIDE [Concomitant]
     Active Substance: POTASSIUM CHLORIDE
  3. ALREX [Concomitant]
     Active Substance: LOTEPREDNOL ETABONATE
  4. CLOFAZIMINE [Concomitant]
     Active Substance: CLOFAZIMINE
  5. TOPIRAMATE [Concomitant]
     Active Substance: TOPIRAMATE
  6. NURTEC ODT [Concomitant]
     Active Substance: RIMEGEPANT SULFATE
     Dosage: ORALLY DISPERSIBLE TABLETS.
  7. PROAIR DIGIHALER [Concomitant]
     Active Substance: ALBUTEROL SULFATE
     Dosage: AEROSOL POWDER, BREATH ACTIVATED WITH SENSOR.
  8. ALBUTEROL SULFATE [Concomitant]
     Active Substance: ALBUTEROL SULFATE
     Dosage: AEROSOL WITH ADAPTER
  9. LINZESS [Concomitant]
     Active Substance: LINACLOTIDE
  10. SODIUM CHLORIDE [Concomitant]
     Active Substance: SODIUM CHLORIDE
     Dosage: VIAL NEBULIZER
  11. ETHAMBUTOL HYDROCHLORIDE [Concomitant]
     Active Substance: ETHAMBUTOL HYDROCHLORIDE
  12. AZITHROMYCIN [Concomitant]
     Active Substance: AZITHROMYCIN

REACTIONS (1)
  - Wrong technique in product usage process [Unknown]
